FAERS Safety Report 6291928-9 (Version None)
Quarter: 2009Q3

REPORT INFORMATION
  Report Type: 
  Country: None (occurrence: None)
  Receive Date: 20090729
  Receipt Date: 20090718
  Transmission Date: 20100115
  Serious: Yes (Other)
  Sender: FDA-Public Use
  Company Number: 2009AP002957

PATIENT
  Age: 19 Year
  Sex: Female

DRUGS (4)
  1. CYCLOSPORINE [Suspect]
     Indication: HISTIOCYTOSIS HAEMATOPHAGIC
     Dosage: 2 MG/KG;QD
  2. IMMUNE GLOBULIN (HUMAN) [Suspect]
     Indication: HISTIOCYTOSIS HAEMATOPHAGIC
  3. METHYLPREDNISOLONE [Suspect]
     Indication: HISTIOCYTOSIS HAEMATOPHAGIC
     Dosage: 1 GM;QD; 1 MG/KG;QD
  4. THYMOGLOBULIN [Suspect]
     Indication: HISTIOCYTOSIS HAEMATOPHAGIC
     Dosage: 1 MG/KG;QD

REACTIONS (4)
  - CYTOMEGALOVIRUS VIRAEMIA [None]
  - DRUG INEFFECTIVE [None]
  - DRUG TOXICITY [None]
  - MULTI-ORGAN FAILURE [None]
